FAERS Safety Report 25239403 (Version 1)
Quarter: 2025Q2

REPORT INFORMATION
  Report Type: Report from Study
  Country: US (occurrence: US)
  Receive Date: 20250425
  Receipt Date: 20250425
  Transmission Date: 20250716
  Serious: Yes (Life-Threatening, Other)
  Sender: OTSUKA
  Company Number: US-MMM-Otsuka-VNQ9U13F

PATIENT
  Sex: Female

DRUGS (4)
  1. ARIPIPRAZOLE [Suspect]
     Active Substance: ARIPIPRAZOLE
     Indication: Product used for unknown indication
     Route: 065
  2. ABILIFY [Suspect]
     Active Substance: ARIPIPRAZOLE
     Indication: Product used for unknown indication
     Route: 065
  3. ARIPIPRAZOLE [Suspect]
     Active Substance: ARIPIPRAZOLE
     Indication: Product used for unknown indication
     Route: 065
  4. ABILIFY MAINTENA [Suspect]
     Active Substance: ARIPIPRAZOLE
     Indication: Product used for unknown indication
     Route: 065

REACTIONS (5)
  - Hallucination, auditory [Unknown]
  - Malaise [Unknown]
  - Suicidal ideation [Unknown]
  - Insurance issue [Unknown]
  - Inability to afford medication [Unknown]
